FAERS Safety Report 16583262 (Version 1)
Quarter: 2019Q3

REPORT INFORMATION
  Report Type: Other
  Country: DE (occurrence: DE)
  Receive Date: 20190717
  Receipt Date: 20190717
  Transmission Date: 20191004
  Serious: Yes (Hospitalization)
  Sender: FDA-Public Use
  Company Number: DE-MACLEODS PHARMACEUTICALS US LTD-MAC2019022097

PATIENT

DRUGS (12)
  1. ATORVASTATIN/EZETIMIBE [Concomitant]
     Active Substance: ATORVASTATIN\EZETIMIBE
     Indication: PRODUCT USED FOR UNKNOWN INDICATION
     Dosage: 40 MG/10MG, QD
     Route: 065
  2. METAMIZOL [Concomitant]
     Active Substance: METAMIZOLE SODIUM
     Indication: PRODUCT USED FOR UNKNOWN INDICATION
     Dosage: 500 MILLIGRAM,30 DROPS IF NECESSARY
  3. QUETIAPINE 25 MG [Concomitant]
     Active Substance: QUETIAPINE
     Indication: PRODUCT USED FOR UNKNOWN INDICATION
     Dosage: 25 MILLIGRAM, QD
     Route: 065
  4. TORASEMID [Concomitant]
     Active Substance: TORSEMIDE
     Indication: PRODUCT USED FOR UNKNOWN INDICATION
     Dosage: 10 MILLIGRAM,10 MG, 1.0.5-0-0
     Route: 065
  5. PANTOPRAZOLE [Suspect]
     Active Substance: PANTOPRAZOLE
     Indication: PRODUCT USED FOR UNKNOWN INDICATION
     Dosage: 40 MILLIGRAM, BID
     Route: 065
  6. METOPROLOL. [Concomitant]
     Active Substance: METOPROLOL
     Indication: PRODUCT USED FOR UNKNOWN INDICATION
     Dosage: 23.75 MILLIGRAM QD
     Route: 065
  7. COLECALCIFEROL [Concomitant]
     Active Substance: CHOLECALCIFEROL
     Indication: PRODUCT USED FOR UNKNOWN INDICATION
     Dosage: 1000 IE, QD
     Route: 065
  8. ASPIRIN. [Suspect]
     Active Substance: ASPIRIN
     Indication: PRODUCT USED FOR UNKNOWN INDICATION
     Dosage: 100 MILLIGRAM, QD
     Route: 065
  9. TAMSULOSIN [Concomitant]
     Active Substance: TAMSULOSIN
     Indication: PRODUCT USED FOR UNKNOWN INDICATION
     Dosage: 0.4 MILLIGRAM, QD
     Route: 065
  10. PENTALONG 50MG [Concomitant]
     Indication: PRODUCT USED FOR UNKNOWN INDICATION
     Dosage: 50 MILLIGRAM, BID
     Route: 065
  11. SODIUM HYDROGEN CARBONATE/POTASSIUM CHLORIDE/SODIUM CHLORIDE/MACROGOL [Concomitant]
     Indication: PRODUCT USED FOR UNKNOWN INDICATION
     Dosage: REQUIRED MG NOT KNOWN
     Route: 065
  12. ALLOPURINOL. [Concomitant]
     Active Substance: ALLOPURINOL
     Indication: PRODUCT USED FOR UNKNOWN INDICATION
     Dosage: 300 MILLIGRAM, HALF DOSE A DAY
     Route: 065

REACTIONS (4)
  - Anaemia [Unknown]
  - Abdominal pain [Unknown]
  - Product prescribing error [Unknown]
  - Medication error [Unknown]
